FAERS Safety Report 14027271 (Version 2)
Quarter: 2018Q3

REPORT INFORMATION
  Report Type: Spontaneous
  Country: US (occurrence: US)
  Receive Date: 20170929
  Receipt Date: 20180927
  Transmission Date: 20181010
  Serious: No
  Sender: FDA-Public Use
  Company Number: US-NOVEN PHARMACEUTICALS, INC.-US2016002803

PATIENT

DRUGS (6)
  1. COMBIPATCH [Suspect]
     Active Substance: ESTRADIOL\NORETHINDRONE ACETATE
     Indication: HOT FLUSH
     Dosage: 0.05/0.14 MG, UNKNOWN
     Route: 062
     Dates: start: 2001, end: 201803
  2. COMBIPATCH [Suspect]
     Active Substance: ESTRADIOL\NORETHINDRONE ACETATE
     Indication: NIGHT SWEATS
  3. COMBIPATCH [Suspect]
     Active Substance: ESTRADIOL\NORETHINDRONE ACETATE
     Indication: MIGRAINE
  4. KEPPRA [Concomitant]
     Active Substance: LEVETIRACETAM
     Indication: MIGRAINE
     Dosage: 700 MG 8 PILLS, QD
     Route: 062
  5. HYDROCHLOROTHIAZIDE. [Concomitant]
     Active Substance: HYDROCHLOROTHIAZIDE
  6. VERAPAMIL [Concomitant]
     Active Substance: VERAPAMIL HYDROCHLORIDE

REACTIONS (10)
  - Inappropriate schedule of drug administration [Recovered/Resolved]
  - Application site erythema [Unknown]
  - Application site rash [Not Recovered/Not Resolved]
  - Application site paraesthesia [Unknown]
  - Off label use [Recovered/Resolved]
  - Therapy cessation [Not Recovered/Not Resolved]
  - Application site pruritus [Unknown]
  - Application site pain [Unknown]
  - Therapeutic response unexpected [Recovered/Resolved]
  - Application site discomfort [Unknown]

NARRATIVE: CASE EVENT DATE: 2001
